FAERS Safety Report 5928533-7 (Version None)
Quarter: 2008Q3

REPORT INFORMATION
  Report Type: 
  Country: None (occurrence: None)
  Receive Date: 20080923
  Receipt Date: 20071221
  Transmission Date: 20090109
  Serious: Yes (Disabling, Other)
  Sender: FDA-Public Use
  Company Number: WAES 0712USA08569

PATIENT
  Age: 60 Year
  Sex: Male
  Weight: 100.6985 kg

DRUGS (10)
  1. VYTORIN [Suspect]
     Indication: BLOOD CHOLESTEROL
     Dosage: 10-40 MG/DAILY/PO : 10-20 MG/DAILY/PO
     Route: 048
     Dates: end: 20061111
  2. VYTORIN [Suspect]
     Indication: BLOOD CHOLESTEROL
     Dosage: 10-40 MG/DAILY/PO : 10-20 MG/DAILY/PO
     Route: 048
     Dates: start: 20061112, end: 20071105
  3. NIACIN [Suspect]
     Dates: end: 20070706
  4. ZETIA [Suspect]
     Dosage: PO
     Route: 048
     Dates: end: 20070706
  5. ZETIA [Suspect]
     Dosage: PO
     Route: 048
     Dates: start: 20070926
  6. PAXIL [Concomitant]
  7. PRINIVIL [Concomitant]
  8. ALPRAZOLAM [Concomitant]
  9. FUROSEMIDE [Concomitant]
  10. WARFARIN SODIUM [Concomitant]

REACTIONS (3)
  - ASTHENIA [None]
  - DISCOMFORT [None]
  - MYALGIA [None]
